FAERS Safety Report 4409968-0 (Version None)
Quarter: 2004Q3

REPORT INFORMATION
  Report Type: 
  Country: None (occurrence: None)
  Receive Date: 20040728
  Receipt Date: 20040728
  Transmission Date: 20050211
  Serious: Yes (Other)
  Sender: FDA-Public Use
  Company Number: None

PATIENT

DRUGS (3)
  1. TERBUTALINE [Suspect]
     Dosage: TABLET 2.5 MG
  2. TERBUTALINE [Suspect]
     Dosage: 1 MG/ML INJECTABLE
  3. METHERGINE [Suspect]
     Dosage: 0.2 MG TABLET

REACTIONS (1)
  - MEDICATION ERROR [None]
